FAERS Safety Report 25929878 (Version 1)
Quarter: 2025Q4

REPORT INFORMATION
  Report Type: Report from Study
  Country: US (occurrence: US)
  Receive Date: 20251016
  Receipt Date: 20251016
  Transmission Date: 20260117
  Serious: Yes (Hospitalization)
  Sender: PFIZER
  Company Number: US-PFIZER INC-PV202400087319

PATIENT
  Age: 64 Year
  Sex: Female

DRUGS (4)
  1. BRAFTOVI [Suspect]
     Active Substance: ENCORAFENIB
     Indication: Colon cancer
     Dosage: 300 MG (4 CAPSULES) ONCE DAILY
     Route: 048
     Dates: start: 20240627
  2. BRAFTOVI [Suspect]
     Active Substance: ENCORAFENIB
     Dosage: 150 MG, 1X/DAY
     Route: 048
     Dates: start: 202407
  3. BRAFTOVI [Suspect]
     Active Substance: ENCORAFENIB
     Dosage: 150 MG, 1X/DAY
     Route: 048
     Dates: start: 202508
  4. VECTIBIX [Concomitant]
     Active Substance: PANITUMUMAB
     Indication: Colon cancer
     Dosage: UNK, EVERY 2 WEEKS (INFUSIONS)

REACTIONS (9)
  - Blood magnesium decreased [Not Recovered/Not Resolved]
  - Tremor [Unknown]
  - Nausea [Recovering/Resolving]
  - Dry skin [Unknown]
  - Pruritus [Unknown]
  - Retching [Unknown]
  - Abdominal adhesions [Unknown]
  - Off label use [Unknown]
  - Product use issue [Unknown]

NARRATIVE: CASE EVENT DATE: 20240627
